FAERS Safety Report 13990413 (Version 1)
Quarter: 2017Q3

REPORT INFORMATION
  Report Type: Spontaneous
  Country: US (occurrence: US)
  Receive Date: 20170920
  Receipt Date: 20170920
  Transmission Date: 20171128
  Serious: Yes (Hospitalization, Other)
  Sender: FDA-Public Use
  Company Number: US-TORRENT-00003381

PATIENT
  Age: 84 Year
  Sex: Male

DRUGS (1)
  1. DONEPEZIL. [Suspect]
     Active Substance: DONEPEZIL

REACTIONS (10)
  - Diarrhoea [Unknown]
  - Electrocardiogram QT prolonged [Recovered/Resolved]
  - Nausea [Unknown]
  - Confusional state [Unknown]
  - Vomiting [Unknown]
  - Fatigue [Unknown]
  - Salivary hypersecretion [Unknown]
  - Bradycardia [Recovered/Resolved]
  - Hyperhidrosis [Unknown]
  - Accidental overdose [Unknown]
